FAERS Safety Report 12760774 (Version 1)
Quarter: 2016Q3

REPORT INFORMATION
  Report Type: Spontaneous
  Country: US (occurrence: US)
  Receive Date: 20160919
  Receipt Date: 20160919
  Transmission Date: 20161109
  Serious: No
  Sender: FDA-Public Use
  Company Number: US-GALDERMA-US16005255

PATIENT
  Sex: Female

DRUGS (4)
  1. DOXYCYCLINE HYCLATE. [Suspect]
     Active Substance: DOXYCYCLINE HYCLATE
     Indication: PRODUCT USE ISSUE
     Route: 048
     Dates: start: 201512
  2. METROGEL [Suspect]
     Active Substance: METRONIDAZOLE
     Indication: PRODUCT USED FOR UNKNOWN INDICATION
     Route: 061
  3. FINACEA [Suspect]
     Active Substance: AZELAIC ACID
     Indication: PRODUCT USE ISSUE
     Route: 061
     Dates: start: 201512
  4. MIRVASO [Suspect]
     Active Substance: BRIMONIDINE TARTRATE
     Indication: PRODUCT USED FOR UNKNOWN INDICATION
     Dosage: 0.33%
     Route: 061
     Dates: start: 201512

REACTIONS (2)
  - Skin exfoliation [Unknown]
  - Drug ineffective [Not Recovered/Not Resolved]

NARRATIVE: CASE EVENT DATE: 201607
